FAERS Safety Report 7340707-X (Version None)
Quarter: 2011Q1

REPORT INFORMATION
  Report Type: 
  Country: None (occurrence: None)
  Receive Date: 20110309
  Receipt Date: 20110303
  Transmission Date: 20110831
  Serious: Yes (Hospitalization)
  Sender: FDA-Public Use
  Company Number: US-PFIZER INC-2011046902

PATIENT
  Sex: Male

DRUGS (1)
  1. SUTENT [Suspect]
     Indication: METASTATIC RENAL CELL CARCINOMA
     Dosage: 50 MG, 1X/DAY
     Dates: start: 20110106

REACTIONS (5)
  - HAEMATEMESIS [None]
  - DECREASED APPETITE [None]
  - WEIGHT DECREASED [None]
  - MALAISE [None]
  - STOMATITIS [None]
